FAERS Safety Report 5662580-8 (Version None)
Quarter: 2008Q1

REPORT INFORMATION
  Report Type: 
  Country: None (occurrence: None)
  Receive Date: 20080219
  Receipt Date: 20070919
  Transmission Date: 20080703
  Serious: Yes (Other)
  Sender: FDA-Public Use
  Company Number: PHEH2007US10575

PATIENT
  Sex: Female

DRUGS (1)
  1. TOBRAMYCIN [Suspect]

REACTIONS (5)
  - CONDITION AGGRAVATED [None]
  - DEAFNESS [None]
  - HALLUCINATION, AUDITORY [None]
  - TINNITUS [None]
  - TOOTH DISORDER [None]
